FAERS Safety Report 25896645 (Version 1)
Quarter: 2025Q4

REPORT INFORMATION
  Report Type: Spontaneous
  Country: US (occurrence: None)
  Receive Date: 20251008
  Receipt Date: 20251008
  Transmission Date: 20260117
  Serious: Yes (Hospitalization)
  Sender: FDA-CTU
  Company Number: None

PATIENT
  Age: 35 Year
  Sex: Female

DRUGS (2)
  1. TALTZ [Suspect]
     Active Substance: IXEKIZUMAB
     Indication: Juvenile idiopathic arthritis
     Dosage: OTHER FREQUENCY : Q4WEEKS;?
     Route: 058
     Dates: start: 20250319
  2. TALTZ [Suspect]
     Active Substance: IXEKIZUMAB
     Indication: Juvenile idiopathic arthritis

REACTIONS (4)
  - Pneumonia [None]
  - Gastric ulcer [None]
  - Gastric haemorrhage [None]
  - Female sterilisation [None]

NARRATIVE: CASE EVENT DATE: 20250815
